FAERS Safety Report 4569374-5 (Version None)
Quarter: 2005Q1

REPORT INFORMATION
  Report Type: 
  Country: None (occurrence: None)
  Receive Date: 20050203
  Receipt Date: 20041202
  Transmission Date: 20050727
  Serious: Yes (Hospitalization)
  Sender: FDA-Public Use
  Company Number: US-ROCHE-388244

PATIENT
  Age: 54 Year
  Sex: Female

DRUGS (9)
  1. COPEGUS [Suspect]
     Indication: HEPATITIS C
     Route: 048
     Dates: start: 20040303
  2. PEG-INTRON [Suspect]
     Indication: HEPATITIS C
     Dosage: REPORTED AS INJECTABLE POWDER
     Route: 058
     Dates: start: 20040303
  3. PEG-INTRON [Suspect]
     Route: 058
     Dates: start: 20041115, end: 20041215
  4. DURAGESIC [Suspect]
     Indication: PAIN
     Route: 062
     Dates: end: 20040615
  5. OMEPRAZOLE [Suspect]
     Route: 048
     Dates: end: 20040615
  6. CLONIDINE [Concomitant]
     Route: 048
  7. COLACE [Concomitant]
     Route: 048
  8. ACETAMINOPHEN AND OXYCOCONE [Concomitant]
     Route: 048
  9. PAROXETINE HYDROCHLORIDE [Concomitant]
     Route: 048

REACTIONS (4)
  - HALLUCINATION, VISUAL [None]
  - LEUKOPENIA [None]
  - OVERDOSE [None]
  - WHOLE BLOOD TRANSFUSION [None]
